FAERS Safety Report 20594546 (Version 1)
Quarter: 2022Q1

REPORT INFORMATION
  Report Type: Spontaneous
  Country: US (occurrence: US)
  Receive Date: 20220315
  Receipt Date: 20220315
  Transmission Date: 20220423
  Serious: Yes (Other)
  Sender: FDA-Public Use
  Company Number: US-Vifor (International) Inc.-VIT-2022-01604

PATIENT
  Age: 62 Year
  Sex: Male
  Weight: 49 kg

DRUGS (3)
  1. MIRCERA [Suspect]
     Active Substance: METHOXY POLYETHYLENE GLYCOL-EPOETIN BETA
     Indication: Nephrogenic anaemia
     Dosage: 75 MCG (3 SYRINGES)
     Route: 040
     Dates: start: 20211221
  2. MIRCERA [Suspect]
     Active Substance: METHOXY POLYETHYLENE GLYCOL-EPOETIN BETA
     Dosage: 75 MCG (3 SYRINGES) 80TH DOSE
     Route: 040
     Dates: start: 20220121
  3. MIRCERA [Suspect]
     Active Substance: METHOXY POLYETHYLENE GLYCOL-EPOETIN BETA
     Dosage: 75 MCG (3 SYRINGES)
     Route: 040
     Dates: start: 20220204, end: 20220204

REACTIONS (3)
  - Drug hypersensitivity [Unknown]
  - Seizure [Unknown]
  - Blood pressure systolic increased [Recovered/Resolved]

NARRATIVE: CASE EVENT DATE: 20220121
